FAERS Safety Report 23882474 (Version 1)
Quarter: 2024Q2

REPORT INFORMATION
  Report Type: Spontaneous
  Country: US (occurrence: US)
  Receive Date: 20240522
  Receipt Date: 20240522
  Transmission Date: 20240716
  Serious: Yes (Other)
  Sender: FDA-Public Use
  Company Number: US-HALEON-2174524

PATIENT
  Age: 49 Year
  Sex: Female

DRUGS (28)
  1. TUMS [Suspect]
     Active Substance: CALCIUM CARBONATE
     Indication: Product used for unknown indication
  2. TUMS [Suspect]
     Active Substance: CALCIUM CARBONATE
     Dosage: UNK APPROXIMATELY 30 MINUTES BEFORE TAKING LUMRYZ
     Dates: start: 20240406, end: 20240406
  3. OMEGA 3 WITH VITAMIN D3 (COLECALCIFEROL, FISH OIL) [Concomitant]
  4. LUMRYZ [Suspect]
     Active Substance: SODIUM OXYBATE
     Indication: Narcolepsy
     Dosage: ONCE NIGHTLY
     Route: 048
     Dates: start: 20240130, end: 202401
  5. LUMRYZ [Suspect]
     Active Substance: SODIUM OXYBATE
     Dosage: EXPDATE:20260228
     Route: 048
     Dates: start: 2024, end: 2024
  6. LUMRYZ [Suspect]
     Active Substance: SODIUM OXYBATE
     Dosage: EXPDATE:20260228
     Route: 048
     Dates: start: 2024, end: 202403
  7. LUMRYZ [Suspect]
     Active Substance: SODIUM OXYBATE
     Dosage: EXPDATE:20260331
     Route: 048
     Dates: start: 20240408, end: 20240408
  8. LUMRYZ [Suspect]
     Active Substance: SODIUM OXYBATE
     Dosage: EXPDATE:20260331
     Dates: start: 20240319, end: 20240406
  9. LUMRYZ [Suspect]
     Active Substance: SODIUM OXYBATE
     Indication: Narcolepsy
  10. LUMRYZ [Suspect]
     Active Substance: SODIUM OXYBATE
  11. LUMRYZ [Suspect]
     Active Substance: SODIUM OXYBATE
  12. PROGESTERONE [Concomitant]
     Active Substance: PROGESTERONE
  13. CALCIUM CARBONATE\CHOLECALCIFEROL [Concomitant]
     Active Substance: CALCIUM CARBONATE\CHOLECALCIFEROL
  14. VITAMIN D2 [Concomitant]
     Active Substance: ERGOCALCIFEROL
  15. SYNTHROID [Concomitant]
     Active Substance: LEVOTHYROXINE SODIUM
  16. SUNOS [Concomitant]
     Dates: end: 202403
  17. PANTOPRAZOLE SODIUM [Concomitant]
     Active Substance: PANTOPRAZOLE SODIUM
  18. EFFEXOR XR [Concomitant]
     Active Substance: VENLAFAXINE HYDROCHLORIDE
  19. CONCERTA [Concomitant]
     Active Substance: METHYLPHENIDATE HYDROCHLORIDE
  20. ADDERALL [Concomitant]
     Active Substance: AMPHETAMINE ASPARTATE\AMPHETAMINE SULFATE\DEXTROAMPHETAMINE SACCHARATE\DEXTROAMPHETAMINE SULFATE
  21. VITAMINS [Concomitant]
     Active Substance: VITAMINS
  22. HERBALS\TURMERIC [Concomitant]
     Active Substance: HERBALS\TURMERIC
  23. VITAMIN B COMPLEX [Concomitant]
     Active Substance: CYANOCOBALAMIN\DEXPANTHENOL\NIACINAMIDE\PYRIDOXINE HYDROCHLORIDE\RIBOFLAVIN 5^-PHOSPHATE SODIUM\THIA
  24. POTASSIUM [Concomitant]
     Active Substance: POTASSIUM
  25. ETHINYL ESTRADIOL\NORETHINDRONE [Concomitant]
     Active Substance: ETHINYL ESTRADIOL\NORETHINDRONE
  26. VITAMIN C [Concomitant]
     Active Substance: ASCORBIC ACID
  27. RITALIN [Concomitant]
     Active Substance: METHYLPHENIDATE HYDROCHLORIDE
     Dates: start: 202403
  28. ESTROVEN COMPLETE MULTI SYMPTOM MENOPAUSE RELIEF [Concomitant]

REACTIONS (22)
  - Sudden onset of sleep [Unknown]
  - Overdose [Unknown]
  - Middle insomnia [Recovering/Resolving]
  - Feeling cold [Recovering/Resolving]
  - Head injury [Unknown]
  - Tenderness [Not Recovered/Not Resolved]
  - Limb injury [Recovering/Resolving]
  - Asthenia [Not Recovered/Not Resolved]
  - Insomnia [Recovering/Resolving]
  - Gastrointestinal disorder [Recovering/Resolving]
  - Facial pain [Not Recovered/Not Resolved]
  - Vomiting projectile [Recovered/Resolved]
  - Illness [Recovering/Resolving]
  - Crying [Recovering/Resolving]
  - Nausea [Unknown]
  - Dizziness [Unknown]
  - Nocturia [Unknown]
  - Drug ineffective [Unknown]
  - Vomiting [Recovered/Resolved]
  - Pain in extremity [Recovering/Resolving]
  - Intentional dose omission [Unknown]
  - Intentional underdose [Unknown]

NARRATIVE: CASE EVENT DATE: 20240130
